FAERS Safety Report 21112506 (Version 1)
Quarter: 2022Q3

REPORT INFORMATION
  Report Type: Spontaneous
  Country: US (occurrence: US)
  Receive Date: 20220721
  Receipt Date: 20220721
  Transmission Date: 20221026
  Serious: Yes (Hospitalization)
  Sender: FDA-Public Use
  Company Number: US-SAMSUNG BIOEPIS-SB-2022-17685

PATIENT
  Age: 48 Year
  Sex: Female

DRUGS (5)
  1. INFLIXIMAB [Suspect]
     Active Substance: INFLIXIMAB
     Indication: Scleritis
     Dosage: UNKNOWN
     Route: 065
  2. METHOTREXATE [Suspect]
     Active Substance: METHOTREXATE
     Indication: Scleritis
     Dosage: UNKNOWN
     Route: 065
  3. PREDNISONE [Suspect]
     Active Substance: PREDNISONE
     Indication: Scleritis
     Dosage: UNKNOWN, HIGH DOSE
     Route: 048
  4. PREDNISONE [Suspect]
     Active Substance: PREDNISONE
     Dosage: TAPERED
     Route: 048
  5. ACETAZOLAMIDE [Concomitant]
     Active Substance: ACETAZOLAMIDE
     Indication: Idiopathic intracranial hypertension
     Dosage: UNKNOWN
     Route: 065

REACTIONS (8)
  - Scleritis [Recovered/Resolved]
  - Substance-induced psychotic disorder [Unknown]
  - Abdominal discomfort [Unknown]
  - Rash [Unknown]
  - Gastrointestinal surgery [Unknown]
  - Drug intolerance [Unknown]
  - Ill-defined disorder [Unknown]
  - Off label use [Unknown]
